FAERS Safety Report 7008940-4 (Version None)
Quarter: 2010Q3

REPORT INFORMATION
  Report Type: 
  Country: None (occurrence: None)
  Receive Date: 20100923
  Receipt Date: 20100914
  Transmission Date: 20110219
  Serious: Yes (Other)
  Sender: FDA-Public Use
  Company Number: PHFR2010GB00827

PATIENT
  Sex: Female

DRUGS (1)
  1. CLOZARIL [Suspect]
     Indication: BORDERLINE PERSONALITY DISORDER
     Dosage: UNK
     Route: 048
     Dates: start: 20051109

REACTIONS (4)
  - BORDERLINE PERSONALITY DISORDER [None]
  - INFECTION [None]
  - SELF INJURIOUS BEHAVIOUR [None]
  - URETHRAL OPERATION [None]
